FAERS Safety Report 24191078 (Version 1)
Quarter: 2024Q3

REPORT INFORMATION
  Report Type: Report from Study
  Country: GR (occurrence: GR)
  Receive Date: 20240808
  Receipt Date: 20240808
  Transmission Date: 20241016
  Serious: Yes (Hospitalization, Other)
  Sender: MYLAN
  Company Number: GR-ABBVIE-5849305

PATIENT
  Age: 69 Year
  Sex: Male
  Weight: 85 kg

DRUGS (3)
  1. LYRICA [Suspect]
     Active Substance: PREGABALIN
     Indication: Neuropsychological symptoms
     Dosage: 50 MILLIGRAM 0.14 DAY
     Route: 048
     Dates: end: 20240714
  2. CARBIDOPA\LEVODOPA [Suspect]
     Active Substance: CARBIDOPA\LEVODOPA
     Indication: Parkinson^s disease
     Dosage: 15 MILLILITER (MORNING DOSE:15.0ML; CONTINUOUS RATE: 4.8ML/H; EXTRA DOSE: 3.0ML)
     Route: 065
     Dates: start: 20220201
  3. CARBIDOPA\LEVODOPA [Suspect]
     Active Substance: CARBIDOPA\LEVODOPA
     Dosage: 12 MILLILITER (MORNING DOSE: 12.0ML; CONTINUOUS RATE: 3.9ML/H; EXTRA DOSE: 3.0ML)
     Route: 065

REACTIONS (8)
  - Discomfort [Recovered/Resolved]
  - Hallucination, visual [Not Recovered/Not Resolved]
  - Neuropsychological symptoms [Not Recovered/Not Resolved]
  - Gait disturbance [Not Recovered/Not Resolved]
  - Hyperkinesia [Recovered/Resolved]
  - Balance disorder [Unknown]
  - Weight decreased [Not Recovered/Not Resolved]
  - Intentional product misuse [Unknown]

NARRATIVE: CASE EVENT DATE: 20230101
